FAERS Safety Report 9745783 (Version 1)
Quarter: 2013Q4

REPORT INFORMATION
  Report Type: Spontaneous
  Country: CN (occurrence: None)
  Receive Date: 20131205
  Receipt Date: 20131205
  Transmission Date: 20140711
  Serious: Yes (Other)
  Sender: FDA-Public Use
  Company Number: CN-JNJFOC-20131118215

PATIENT
  Age: 34 Year
  Sex: Male

DRUGS (2)
  1. DECITABINE (DECITABINE) LYOPHILIZED POWDER [Suspect]
     Indication: ACUTE MYELOID LEUKAEMIA
     Route: 042
  2. ACLACINOMYCIN (ACLARUBICIN) UNSPECIFIED [Suspect]
     Route: 042

REACTIONS (1)
  - Haematotoxicity [None]
